FAERS Safety Report 5807579-3 (Version None)
Quarter: 2008Q3

REPORT INFORMATION
  Report Type: 
  Country: None (occurrence: None)
  Receive Date: 20080711
  Receipt Date: 20080703
  Transmission Date: 20090109
  Serious: Yes (Hospitalization, Other)
  Sender: FDA-Public Use
  Company Number: SE-RB-001962-08

PATIENT
  Age: 40 Year
  Sex: Male
  Weight: 106 kg

DRUGS (7)
  1. SUBUTEX [Suspect]
     Route: 060
     Dates: start: 20080208
  2. SELOKEN [Concomitant]
     Indication: DRUG USE FOR UNKNOWN INDICATION
     Dosage: UNKNOWN DOSING INFORMATION.
  3. ZOLOFT [Concomitant]
     Indication: DRUG USE FOR UNKNOWN INDICATION
     Dosage: UNKNOWN DOSING INFORMATION.
  4. MIANSERIN [Concomitant]
     Indication: DRUG USE FOR UNKNOWN INDICATION
     Dosage: UNKNOWN DOSING INFORMATION.
  5. LERGIGAN [Concomitant]
     Indication: DRUG USE FOR UNKNOWN INDICATION
     Dosage: UNKNOWN DOSING INFORMATION.
  6. IMOVANE [Concomitant]
     Indication: DRUG USE FOR UNKNOWN INDICATION
     Dosage: UNKNOWN DOSING INFORMATION,
  7. FURIX [Concomitant]
     Indication: DRUG USE FOR UNKNOWN INDICATION
     Dosage: UNKNOWN DOSING INFORMATION.

REACTIONS (7)
  - DIABETES MELLITUS [None]
  - DIPLOPIA [None]
  - FOOD CRAVING [None]
  - PALLOR [None]
  - THIRST [None]
  - URINE OUTPUT INCREASED [None]
  - WEIGHT DECREASED [None]
